FAERS Safety Report 6986392-8 (Version None)
Quarter: 2010Q3

REPORT INFORMATION
  Report Type: 
  Country: None (occurrence: None)
  Receive Date: 20100915
  Receipt Date: 20090626
  Transmission Date: 20110219
  Serious: No
  Sender: FDA-Public Use
  Company Number: US-WYE-H09939009

PATIENT
  Sex: Male
  Weight: 89.44 kg

DRUGS (4)
  1. PRISTIQ [Suspect]
     Indication: DEPRESSION
     Route: 048
     Dates: start: 20090624
  2. DOMPERIDONE [Concomitant]
  3. PRILOSEC [Concomitant]
  4. OXYCONTIN [Concomitant]

REACTIONS (1)
  - NAUSEA [None]
